FAERS Safety Report 5952035-5 (Version None)
Quarter: 2008Q4

REPORT INFORMATION
  Report Type: 
  Country: None (occurrence: None)
  Receive Date: 20081113
  Receipt Date: 20080103
  Transmission Date: 20090506
  Serious: No
  Sender: FDA-Public Use
  Company Number: A0701204A

PATIENT
  Age: 67 Year
  Sex: Male

DRUGS (3)
  1. COREG [Suspect]
     Indication: HEART VALVE REPLACEMENT
     Route: 048
     Dates: start: 20070201, end: 20070101
  2. COREG CR [Suspect]
     Indication: HEART VALVE REPLACEMENT
     Dosage: 40MG PER DAY
     Route: 048
     Dates: start: 20070501
  3. MULTIPLE MEDICATIONS [Concomitant]

REACTIONS (1)
  - DIZZINESS [None]
